FAERS Safety Report 23679960 (Version 1)
Quarter: 2024Q1

REPORT INFORMATION
  Report Type: Report from Study
  Country: CA (occurrence: CA)
  Receive Date: 20240327
  Receipt Date: 20240327
  Transmission Date: 20240410
  Serious: Yes (Other)
  Sender: FDA-Public Use
  Company Number: CA-002147023-NVSC2022CA170386

PATIENT
  Age: 54 Year
  Sex: Female

DRUGS (2)
  1. HYRIMOZ [Suspect]
     Active Substance: ADALIMUMAB-ADAZ
     Indication: Crohn^s disease
     Dosage: 40 MG, Q2W
     Route: 058
     Dates: start: 20220414
  2. PENICILLIN [Concomitant]
     Active Substance: PENICILLIN
     Indication: Tooth extraction
     Dosage: UNK
     Route: 065
     Dates: start: 20240311, end: 20240320

REACTIONS (11)
  - Tooth disorder [Unknown]
  - Abnormal faeces [Unknown]
  - COVID-19 [Unknown]
  - Nasal congestion [Unknown]
  - Oropharyngeal pain [Unknown]
  - Pyrexia [Unknown]
  - Herpes zoster [Unknown]
  - Nasopharyngitis [Unknown]
  - Influenza [Unknown]
  - Cough [Unknown]
  - Intentional dose omission [Unknown]

NARRATIVE: CASE EVENT DATE: 20220911
